FAERS Safety Report 5064840-0 (Version None)
Quarter: 2006Q3

REPORT INFORMATION
  Report Type: 
  Country: None (occurrence: None)
  Receive Date: 20060725
  Receipt Date: 20060712
  Transmission Date: 20061208
  Serious: No
  Sender: FDA-Public Use
  Company Number: 2006BH011780

PATIENT
  Age: 67 Year
  Sex: Male
  Weight: 113.3993 kg

DRUGS (13)
  1. DEXAMETHASONE TAB [Suspect]
     Indication: PANCREATIC CARCINOMA
     Dosage: 20 MG; EVERY 2 WK; IV
     Route: 042
     Dates: start: 20060411, end: 20060425
  2. FLUOROURACIL [Suspect]
     Indication: PANCREATIC CARCINOMA
     Dosage: 950 MG; EVERY 2 WK; IV;  2850 MG; EVERY 2 WK; IV
     Route: 042
     Dates: start: 20060411, end: 20060425
  3. FLUOROURACIL [Suspect]
     Indication: PANCREATIC CARCINOMA
     Dosage: 950 MG; EVERY 2 WK; IV;  2850 MG; EVERY 2 WK; IV
     Route: 042
     Dates: start: 20060411, end: 20060425
  4. OXALIPLATIN [Suspect]
     Indication: PANCREATIC CARCINOMA
     Dosage: 200 MG; EVERY 2 WK; IV
     Route: 042
     Dates: start: 20060411, end: 20060425
  5. BEVACIRUMAB [Suspect]
     Indication: PANCREATIC CARCINOMA
     Dosage: 570 MG; EVERY 2 WK; IV
     Route: 042
     Dates: start: 20060411, end: 20060425
  6. LEUCOVORIN CALCIUM [Suspect]
     Indication: PANCREATIC CARCINOMA
     Dosage: 475 MG; EVERY 2 WK; IV
     Route: 042
     Dates: start: 20060411, end: 20060425
  7. LORAZEPAM [Suspect]
     Indication: PANCREATIC CARCINOMA
     Dosage: 1 MG; EVERY 2 WK; PO
     Route: 048
     Dates: start: 20060411, end: 20060425
  8. GRANISETRON  HCL [Suspect]
     Indication: PANCREATIC CARCINOMA
     Dosage: 1200  UG; EVERY 2 WK; IV
     Route: 042
     Dates: start: 20060411, end: 20060425
  9. PANTOPRAZOLE SODIUM [Concomitant]
  10. OCTREOTIDE ACETATE [Concomitant]
  11. 10% DEXTROSE [Concomitant]
  12. LACTATED RINGER'S [Concomitant]
  13. ACETYLSALICYLIC ACID SRT [Concomitant]

REACTIONS (11)
  - ABDOMINAL PAIN UPPER [None]
  - CHILLS [None]
  - DEHYDRATION [None]
  - DIARRHOEA [None]
  - FATIGUE [None]
  - FLATULENCE [None]
  - HYPOAESTHESIA [None]
  - HYPOTENSION [None]
  - PAIN IN EXTREMITY [None]
  - PARAESTHESIA [None]
  - VOMITING [None]
